FAERS Safety Report 7879995-X (Version None)
Quarter: 2011Q4

REPORT INFORMATION
  Report Type: 
  Country: None (occurrence: None)
  Receive Date: 20111101
  Receipt Date: 20111024
  Transmission Date: 20120403
  Serious: No
  Sender: FDA-Public Use
  Company Number: US-B.I. PHARMACEUTICALS,INC./RIDGEFIELD-2011-BP-24962BP

PATIENT
  Sex: Male

DRUGS (15)
  1. PRADAXA [Suspect]
     Indication: ATRIAL FIBRILLATION
     Dosage: 300 MG
     Route: 048
     Dates: start: 20110914
  2. ATACAND [Concomitant]
     Indication: HYPERTENSION
  3. SYNTHROID [Concomitant]
     Indication: HYPOTHYROIDISM
  4. ASPIRIN [Concomitant]
     Indication: CARDIOVASCULAR EVENT PROPHYLAXIS
  5. TEKTURNA [Concomitant]
     Indication: HYPERTENSION
  6. DOXAZOSIN MESYLATE [Concomitant]
     Indication: HYPERTENSION
  7. LESCOL [Concomitant]
     Indication: BLOOD CHOLESTEROL INCREASED
  8. GI ANTIBIOTICS [Suspect]
     Indication: HELICOBACTER INFECTION
  9. NIASPAN [Concomitant]
     Indication: BLOOD TRIGLYCERIDES INCREASED
  10. K-CLOR [Concomitant]
  11. DILTIAZEM HCL [Concomitant]
  12. FINASTERIDE [Concomitant]
  13. OMEPRAZOLE [Suspect]
     Indication: GASTROOESOPHAGEAL REFLUX DISEASE
  14. PLAVIX [Concomitant]
     Indication: STENT PLACEMENT
  15. FUROSEMIDE [Concomitant]

REACTIONS (5)
  - PAIN IN EXTREMITY [None]
  - FLUSHING [None]
  - FATIGUE [None]
  - DYSGEUSIA [None]
  - ASTHENIA [None]
